FAERS Safety Report 7769715-1 (Version None)
Quarter: 2011Q3

REPORT INFORMATION
  Report Type: 
  Country: None (occurrence: None)
  Receive Date: 20110922
  Receipt Date: 20110105
  Transmission Date: 20111222
  Serious: No
  Sender: FDA-Public Use
  Company Number: US-ASTRAZENECA-2011SE00624

PATIENT
  Sex: Male
  Weight: 77.1 kg

DRUGS (6)
  1. SEROQUEL [Suspect]
     Route: 048
  2. SEROQUEL [Suspect]
     Indication: BIPOLAR DISORDER
     Route: 048
     Dates: start: 20080101
  3. SEROQUEL [Suspect]
     Route: 048
     Dates: end: 20100101
  4. SEROQUEL [Suspect]
     Route: 048
     Dates: start: 20101101, end: 20110101
  5. PCN [Concomitant]
  6. SEROQUEL [Suspect]
     Dosage: INCRESED DOSE TO 50 MILLIGRAM QAM AND 150 MILLIGRAM QHS
     Route: 048
     Dates: start: 20110101

REACTIONS (9)
  - MOOD SWINGS [None]
  - MANIA [None]
  - RESTLESSNESS [None]
  - SOMNOLENCE [None]
  - ANXIETY [None]
  - DEPRESSION [None]
  - LETHARGY [None]
  - APATHY [None]
  - SEDATION [None]
